FAERS Safety Report 4591922-X (Version None)
Quarter: 2005Q1

REPORT INFORMATION
  Report Type: 
  Country: None (occurrence: None)
  Receive Date: 20050222
  Receipt Date: 20041221
  Transmission Date: 20050727
  Serious: Yes (Death, Hospitalization, Other)
  Sender: FDA-Public Use
  Company Number: 2004094311

PATIENT
  Age: 38 Year
  Sex: Male
  Weight: 77.1115 kg

DRUGS (3)
  1. CELEBREX [Suspect]
     Indication: BRAIN STEM GLIOMA
     Dosage: 800 MG, ORAL
     Route: 048
     Dates: end: 20040427
  2. CORTICOSTEROID NOS (CORTICOSTEROID NOS) [Suspect]
     Indication: SWELLING
     Dates: start: 20030101
  3. DRUG UNSPECIFIED (DRUG, UNSPECIFIED) [Concomitant]

REACTIONS (3)
  - MYOCARDIAL INFARCTION [None]
  - THROMBOSIS [None]
  - WEIGHT INCREASED [None]
